FAERS Safety Report 9952024 (Version 1)
Quarter: 2014Q1

REPORT INFORMATION
  Report Type: Spontaneous
  Country: US (occurrence: US)
  Receive Date: 20140304
  Receipt Date: 20140304
  Transmission Date: 20141002
  Serious: No
  Sender: FDA-Public Use
  Company Number: US-AMGEN-USASP2013082576

PATIENT
  Age: 37 Year
  Sex: Female
  Weight: 79.37 kg

DRUGS (4)
  1. ENBREL [Suspect]
     Indication: PRODUCT USED FOR UNKNOWN INDICATION
     Dosage: 50 MG, UNK
     Route: 065
  2. METHOTREXATE [Concomitant]
     Dosage: 2.5 MG, UNK
  3. ONDANSETRON [Concomitant]
     Dosage: 8 MG, UNK
  4. TRAMADOL HCL [Concomitant]
     Dosage: 50 MG, UNK

REACTIONS (1)
  - Gingival discolouration [Unknown]
